FAERS Safety Report 5498419-3 (Version None)
Quarter: 2007Q4

REPORT INFORMATION
  Report Type: 
  Country: None (occurrence: None)
  Receive Date: 20071024
  Receipt Date: 20071010
  Transmission Date: 20080405
  Serious: Yes (Hospitalization)
  Sender: FDA-Public Use
  Company Number: ALK_00420_2007

PATIENT
  Sex: Male

DRUGS (4)
  1. VIVITROL [Suspect]
     Indication: ALCOHOLISM
     Dosage: (380 MG 1X/MONTH INTRAMUSCULAR)
     Route: 030
     Dates: start: 20070901
  2. NEURONTIN [Concomitant]
  3. ALBUTEROL [Concomitant]
  4. LEXAPRO [Concomitant]

REACTIONS (1)
  - ROAD TRAFFIC ACCIDENT [None]
